FAERS Safety Report 14616032 (Version 2)
Quarter: 2018Q1

REPORT INFORMATION
  Report Type: Report from Study
  Country: None (occurrence: US)
  Receive Date: 20180309
  Receipt Date: 20180323
  Transmission Date: 20180509
  Serious: Yes (Hospitalization)
  Sender: FDA-Public Use
  Company Number: US-ABBVIE-18K-163-2279259-00

PATIENT
  Age: 56 Year
  Sex: Male

DRUGS (1)
  1. HUMIRA [Suspect]
     Active Substance: ADALIMUMAB
     Indication: PSORIASIS
     Route: 058
     Dates: start: 201711

REACTIONS (13)
  - Erythema [Unknown]
  - Helplessness [Unknown]
  - Sputum discoloured [Unknown]
  - Gait disturbance [Unknown]
  - Rash papular [Unknown]
  - Skin lesion [Unknown]
  - Productive cough [Unknown]
  - Arthralgia [Unknown]
  - Pruritus [Not Recovered/Not Resolved]
  - Emotional distress [Unknown]
  - Hallucination [Unknown]
  - Purpura [Unknown]
  - Contusion [Unknown]

NARRATIVE: CASE EVENT DATE: 201802
